FAERS Safety Report 10571797 (Version 1)
Quarter: 2014Q4

REPORT INFORMATION
  Report Type: Spontaneous
  Country: US (occurrence: US)
  Receive Date: 20141107
  Receipt Date: 20141107
  Transmission Date: 20150529
  Serious: Yes (Other)
  Sender: FDA-Public Use
  Company Number: US-TEVA-520669USA

PATIENT
  Sex: Female

DRUGS (1)
  1. COPAXONE [Suspect]
     Active Substance: GLATIRAMER ACETATE
     Indication: MULTIPLE SCLEROSIS
     Route: 065

REACTIONS (8)
  - Chest discomfort [Unknown]
  - Abnormal behaviour [Unknown]
  - Rash macular [Unknown]
  - Dysgeusia [Unknown]
  - Anaphylactic reaction [Unknown]
  - Loss of consciousness [Unknown]
  - Dyspnoea [Unknown]
  - Flushing [Unknown]
